FAERS Safety Report 21844957 (Version 1)
Quarter: 2023Q1

REPORT INFORMATION
  Report Type: Other
  Country: US (occurrence: US)
  Receive Date: 20230110
  Receipt Date: 20230110
  Transmission Date: 20230418
  Serious: Yes (Hospitalization, Other)
  Sender: FDA-Public Use
  Company Number: US-HLS-202202284

PATIENT
  Age: 14 Year
  Sex: Female

DRUGS (13)
  1. CLOZAPINE [Suspect]
     Active Substance: CLOZAPINE
     Indication: Product used for unknown indication
     Dosage: 25 MG, WHICH WAS TITRATED BY 25 MG INCREMENTS TO 100 MG.
     Route: 065
  2. METFORMIN [Concomitant]
     Active Substance: METFORMIN HYDROCHLORIDE
     Indication: Product used for unknown indication
     Dosage: 500MG TWICE A DAY
     Route: 065
  3. GUANFACINE [Concomitant]
     Active Substance: GUANFACINE
     Indication: Product used for unknown indication
     Dosage: 4MG AT BEDTIME; WAS TAPERED AND DISCONTINUED
     Route: 065
  4. LITHIUM [Concomitant]
     Active Substance: LITHIUM
     Indication: Impulsive behaviour
     Dosage: 900MG AT BEDTIME; DOSE REDUCED TO 450 MG
     Route: 065
  5. LITHIUM [Concomitant]
     Active Substance: LITHIUM
     Indication: Obesity
     Dosage: 900MG AT BEDTIME; DOSE REDUCED TO 450 MG
     Route: 065
  6. LITHIUM [Concomitant]
     Active Substance: LITHIUM
     Indication: Mood swings
     Dosage: 900MG AT BEDTIME; DOSE REDUCED TO 450 MG
     Route: 065
  7. RISPERIDONE [Concomitant]
     Active Substance: RISPERIDONE
     Indication: Product used for unknown indication
     Dosage: 0.25 MG TWICE A DAY FROM AGE 11 AND THEN WITHDRAWN; THEN, REINTRODUCED TO 0.5 MG DAILY AND 1 MG AT B
     Route: 065
  8. CLOMIPRAMINE [Concomitant]
     Active Substance: CLOMIPRAMINE
     Indication: Psychotic disorder
     Dosage: 25MG ORALLY AT BEDTIME, INCREASED TO 75MG;?INTRAMUSCULAR PRN DURING HOSPITALIZATION
     Route: 065
  9. CLOMIPRAMINE [Concomitant]
     Active Substance: CLOMIPRAMINE
     Indication: Obsessive-compulsive symptom
     Dosage: 25MG ORALLY AT BEDTIME, INCREASED TO 75MG;?INTRAMUSCULAR PRN DURING HOSPITALIZATION
     Route: 065
  10. GABAPENTIN [Concomitant]
     Active Substance: GABAPENTIN
     Indication: Product used for unknown indication
     Dosage: 800 MG TWICE DAILY THEN DECREASED TO 800 MG AT BEDTIME AND THEN WITHDRAWN
     Route: 065
  11. TOPIRAMATE [Concomitant]
     Active Substance: TOPIRAMATE
     Indication: Impulsive behaviour
     Dosage: 50 MG TWICE DAILY
     Route: 065
  12. TOPIRAMATE [Concomitant]
     Active Substance: TOPIRAMATE
     Indication: Obesity
     Dosage: 50 MG TWICE DAILY
     Route: 065
  13. TOPIRAMATE [Concomitant]
     Active Substance: TOPIRAMATE
     Indication: Mood swings
     Dosage: 50 MG TWICE DAILY
     Route: 065

REACTIONS (9)
  - Anxiety [Unknown]
  - Constipation [Recovered/Resolved]
  - Sedation [Recovered/Resolved]
  - Decreased appetite [Recovered/Resolved]
  - Impulsive behaviour [Recovering/Resolving]
  - Disruptive mood dysregulation disorder [Recovered/Resolved]
  - Off label use [Unknown]
  - Intentional self-injury [Recovered/Resolved]
  - Suicidal ideation [Recovered/Resolved]
